FAERS Safety Report 13395524 (Version 1)
Quarter: 2017Q2

REPORT INFORMATION
  Report Type: Spontaneous
  Country: US (occurrence: US)
  Receive Date: 20170403
  Receipt Date: 20170403
  Transmission Date: 20170830
  Serious: No
  Sender: FDA-Public Use
  Company Number: US-AUROBINDO-AUR-APU-2016-09146

PATIENT
  Sex: Female

DRUGS (3)
  1. SERTRALINE HYDROCHLORIDE TABLETS 25MG [Suspect]
     Active Substance: SERTRALINE HYDROCHLORIDE
     Indication: PRODUCT USED FOR UNKNOWN INDICATION
     Dosage: 1 DF, ONCE A DAY
     Dates: start: 20060706, end: 20160708
  2. BALSALAZIDE [Concomitant]
     Active Substance: BALSALAZIDE
     Indication: PRODUCT USED FOR UNKNOWN INDICATION
     Dosage: 750 MG, UNK
     Route: 065
  3. TRAMADOL. [Concomitant]
     Active Substance: TRAMADOL
     Indication: PRODUCT USED FOR UNKNOWN INDICATION
     Dosage: 10 MG, UNK
     Route: 065

REACTIONS (5)
  - Headache [Recovered/Resolved]
  - Product substitution issue [Recovered/Resolved]
  - Condition aggravated [Unknown]
  - Dyspepsia [Recovered/Resolved]
  - Hot flush [Recovered/Resolved]
